FAERS Safety Report 10072807 (Version 1)
Quarter: 2014Q2

REPORT INFORMATION
  Report Type: Spontaneous
  Country: FR (occurrence: FR)
  Receive Date: 20140411
  Receipt Date: 20140411
  Transmission Date: 20141212
  Serious: Yes (Life-Threatening, Other)
  Sender: FDA-Public Use
  Company Number: FR-009507513-1404FRA005410

PATIENT
  Age: 47 Year
  Sex: Female

DRUGS (5)
  1. ESMERON [Suspect]
     Dosage: 1 DF, ONCE
     Route: 042
     Dates: start: 20140224, end: 20140224
  2. PROPOFOL FRESENIUS [Suspect]
     Dosage: 1 DF, ONCE
     Route: 042
     Dates: start: 20140224, end: 20140224
  3. SUFENTANIL MERCK [Suspect]
     Dosage: 1 DF, ONCE
     Route: 042
     Dates: start: 20140224, end: 20140224
  4. CYMBALTA [Concomitant]
  5. SEVIKAR [Concomitant]

REACTIONS (6)
  - Anaphylactic shock [Recovered/Resolved with Sequelae]
  - Rash [Recovered/Resolved]
  - Renal failure acute [Recovered/Resolved with Sequelae]
  - Acidosis [Recovered/Resolved]
  - Hyperglycaemia [Recovered/Resolved]
  - Pneumonia aspiration [Recovering/Resolving]
